FAERS Safety Report 5272352-4 (Version None)
Quarter: 2007Q1

REPORT INFORMATION
  Report Type: 
  Country: None (occurrence: None)
  Receive Date: 20070322
  Receipt Date: 20070320
  Transmission Date: 20070707
  Serious: Yes (Hospitalization)
  Sender: FDA-Public Use
  Company Number: DEWYE096220MAR07

PATIENT
  Age: 40 Year
  Sex: Female
  Weight: 75 kg

DRUGS (2)
  1. VENLAFAXINE HCL [Suspect]
     Dosage: UNKNOWN
     Route: 048
     Dates: start: 20070319
  2. AMITRIPTYLINE HCL [Suspect]
     Dosage: 50 TABLETS (OVERDOSE AMOUNT 500 MG)
     Route: 048
     Dates: start: 20070319, end: 20070319

REACTIONS (4)
  - DYSARTHRIA [None]
  - FATIGUE [None]
  - INTENTIONAL OVERDOSE [None]
  - MOVEMENT DISORDER [None]
